FAERS Safety Report 16061396 (Version 1)
Quarter: 2019Q1

REPORT INFORMATION
  Report Type: Spontaneous
  Country: US (occurrence: US)
  Receive Date: 20190312
  Receipt Date: 20190312
  Transmission Date: 20190418
  Serious: No
  Sender: FDA-Public Use
  Company Number: US-ROCHE-2223793

PATIENT
  Age: 70 Year
  Sex: Female
  Weight: 74.91 kg

DRUGS (2)
  1. AVASTIN [Suspect]
     Active Substance: BEVACIZUMAB
     Indication: GLIOBLASTOMA
     Dosage: FIRST DOSE
     Route: 042
     Dates: start: 20181031, end: 20181031
  2. AVASTIN [Suspect]
     Active Substance: BEVACIZUMAB
     Indication: NECROSIS

REACTIONS (2)
  - Drug ineffective [Unknown]
  - No adverse event [Unknown]

NARRATIVE: CASE EVENT DATE: 20181114
